FAERS Safety Report 13964232 (Version 2)
Quarter: 2017Q4

REPORT INFORMATION
  Report Type: Spontaneous
  Country: JP (occurrence: JP)
  Receive Date: 20170913
  Receipt Date: 20171023
  Transmission Date: 20180320
  Serious: Yes (Death, Hospitalization)
  Sender: FDA-Public Use
  Company Number: JP-BAYER-2017-169732

PATIENT
  Age: 72 Year
  Sex: Male
  Weight: 52 kg

DRUGS (11)
  1. LYRICA [Concomitant]
     Active Substance: PREGABALIN
     Indication: HEPATOCELLULAR CARCINOMA
     Dosage: 75 MG, QD
     Route: 048
     Dates: end: 20170816
  2. OXINORM [OXYCODONE HYDROCHLORIDE] [Concomitant]
     Indication: METASTASES TO BONE
  3. ALLOPURINOL. [Concomitant]
     Active Substance: ALLOPURINOL
     Indication: HYPERURICAEMIA
     Dosage: 100 MG, QD
     Route: 048
     Dates: end: 20170816
  4. OXINORM [OXYCODONE HYDROCHLORIDE] [Concomitant]
     Indication: HEPATOCELLULAR CARCINOMA
     Dosage: 5 MG, PRN
     Route: 048
     Dates: end: 20170816
  5. STIVARGA [Suspect]
     Active Substance: REGORAFENIB
     Indication: HEPATOCELLULAR CARCINOMA
     Dosage: 80 MG, QD
     Route: 048
     Dates: start: 20170725, end: 20170809
  6. CANDESARTAN. [Concomitant]
     Active Substance: CANDESARTAN
     Indication: HYPERTENSION
     Dosage: 8 MG, QD
     Route: 048
     Dates: end: 20170816
  7. URSODEOXYCHOLIC ACID [Concomitant]
     Active Substance: URSODIOL
     Indication: NON-ALCOHOLIC STEATOHEPATITIS
     Dosage: 600 MG, QD
     Route: 048
     Dates: end: 20170816
  8. AMLODIPINE [Concomitant]
     Active Substance: AMLODIPINE BESYLATE
     Indication: HYPERTENSION
     Dosage: 5 MG, QD
     Route: 048
     Dates: end: 20170816
  9. LIVACT [Concomitant]
     Active Substance: AMINO ACIDS
     Indication: NON-ALCOHOLIC STEATOHEPATITIS
     Dosage: 12.45 G, QD
     Route: 048
     Dates: end: 20170816
  10. BEZAFIBRATE [Concomitant]
     Active Substance: BEZAFIBRATE
     Indication: NON-ALCOHOLIC STEATOHEPATITIS
     Dosage: 200 MG, QD
     Route: 048
     Dates: end: 20170816
  11. LYRICA [Concomitant]
     Active Substance: PREGABALIN
     Indication: METASTASES TO BONE

REACTIONS (7)
  - Malnutrition [Fatal]
  - Decreased appetite [Not Recovered/Not Resolved]
  - Muscular weakness [None]
  - Dyspnoea [None]
  - Urinary tract infection [Not Recovered/Not Resolved]
  - Hepatocellular carcinoma [Fatal]
  - Septic shock [Fatal]

NARRATIVE: CASE EVENT DATE: 20170727
